FAERS Safety Report 6120346-9 (Version None)
Quarter: 2009Q1

REPORT INFORMATION
  Report Type: 
  Country: None (occurrence: None)
  Receive Date: 20090312
  Receipt Date: 20090312
  Transmission Date: 20090719
  Serious: Yes (Other)
  Sender: FDA-Public Use
  Company Number: None

PATIENT
  Sex: Female
  Weight: 74.8435 kg

DRUGS (2)
  1. LIPITOR [Suspect]
     Indication: MYOCARDIAL INFARCTION
     Dosage: 1 PILL ONCE A DAY P.M.
     Dates: start: 20060101, end: 20081201
  2. SIMVASTATIN [Suspect]
     Dosage: 20 MG
     Dates: start: 20090101, end: 20090201

REACTIONS (5)
  - BLOOD GLUCOSE INCREASED [None]
  - GAIT DISTURBANCE [None]
  - INSOMNIA [None]
  - NIGHTMARE [None]
  - PAIN IN EXTREMITY [None]
